FAERS Safety Report 7759769-0 (Version None)
Quarter: 2011Q3

REPORT INFORMATION
  Report Type: 
  Country: None (occurrence: None)
  Receive Date: 20110919
  Receipt Date: 20110914
  Transmission Date: 20111222
  Serious: Yes (Death, Hospitalization, Other)
  Sender: FDA-Public Use
  Company Number: PHHY2011DK81748

PATIENT
  Sex: Female
  Weight: 48.6 kg

DRUGS (12)
  1. METHOTREXATE [Suspect]
     Indication: MYALGIA
     Dosage: 10 MG. QW
     Dates: start: 20070101, end: 20080616
  2. PRIMPERAN TAB [Concomitant]
  3. PREDNISOLONE [Concomitant]
     Indication: MYALGIA
     Dosage: 5 MG, QD
     Route: 048
  4. ALENDRONIC ACID [Concomitant]
  5. POTASSIUM CHLORIDE [Concomitant]
  6. RESORCINOL [Concomitant]
  7. OXYCONTIN [Concomitant]
  8. LISINOPRIL [Concomitant]
  9. FUROSEMIDE [Concomitant]
  10. OMEPRAZOL ^ACYFABRIK^ [Concomitant]
  11. MEPRONET [Concomitant]
     Dosage: 100 MG, UNK
  12. DURAGESIC-100 [Concomitant]
     Dosage: 50 UG, UNK

REACTIONS (10)
  - FUNGAL OESOPHAGITIS [None]
  - DYSPNOEA [None]
  - GENERAL PHYSICAL HEALTH DETERIORATION [None]
  - DEATH [None]
  - URINARY TRACT INFECTION [None]
  - ARRHYTHMIA SUPRAVENTRICULAR [None]
  - MYOCARDIAL INFARCTION [None]
  - HIATUS HERNIA [None]
  - PNEUMOCYSTIS JIROVECI INFECTION [None]
  - NAUSEA [None]
